FAERS Safety Report 8338056-6 (Version None)
Quarter: 2012Q2

REPORT INFORMATION
  Report Type: 
  Country: None (occurrence: None)
  Receive Date: 20120504
  Receipt Date: 20120423
  Transmission Date: 20120825
  Serious: Yes (Life-Threatening, Hospitalization)
  Sender: FDA-Public Use
  Company Number: FR-VERTEX PHARMACEUTICALS INC.-000000000000000588

PATIENT
  Sex: Male
  Weight: 49 kg

DRUGS (6)
  1. JANUMET [Concomitant]
     Indication: PRODUCT USED FOR UNKNOWN INDICATION
     Dosage: 1G/50MG
     Dates: end: 20120410
  2. INCIVEK [Suspect]
     Indication: HEPATITIS C
     Dosage: DOSAGE FORM: TABLET
     Dates: start: 20120124, end: 20120410
  3. PEGASYS [Concomitant]
     Indication: HEPATITIS C
     Route: 058
     Dates: start: 20120124, end: 20120410
  4. NEORECORMON [Concomitant]
     Route: 058
     Dates: start: 20120406
  5. COPEGUS [Concomitant]
     Indication: HEPATITIS C
     Route: 048
     Dates: start: 20120124, end: 20120406
  6. COPEGUS [Concomitant]
     Route: 048
     Dates: start: 20120406, end: 20120410

REACTIONS (10)
  - DISSEMINATED INTRAVASCULAR COAGULATION [None]
  - RHABDOMYOLYSIS [None]
  - FACTOR V DEFICIENCY [None]
  - LACTIC ACIDOSIS [None]
  - MULTI-ORGAN FAILURE [None]
  - HEPATIC FAILURE [None]
  - ANAEMIA [None]
  - PERITONEAL DIALYSIS [None]
  - FALL [None]
  - RENAL FAILURE [None]
